FAERS Safety Report 7835130-5 (Version None)
Quarter: 2011Q4

REPORT INFORMATION
  Report Type: 
  Country: None (occurrence: None)
  Receive Date: 20111024
  Receipt Date: 20111017
  Transmission Date: 20120403
  Serious: Yes (Hospitalization, Other)
  Sender: FDA-Public Use
  Company Number: CHPA2011JP10803

PATIENT
  Sex: Male
  Weight: 56 kg

DRUGS (3)
  1. AMLODIPINE [Concomitant]
     Indication: HYPERTENSION
     Dosage: 5 MG, QD
     Route: 048
  2. MAGMITT KENEI [Concomitant]
     Indication: CONSTIPATION
     Dosage: 330 MG, QD
     Route: 048
  3. PURSENNID [Suspect]
     Indication: CONSTIPATION
     Dosage: 12 MG, QD
     Route: 048
     Dates: start: 20110617, end: 20110601

REACTIONS (16)
  - GAMMA-GLUTAMYLTRANSFERASE INCREASED [None]
  - BLOOD GLUCOSE INCREASED [None]
  - BLOOD SODIUM DECREASED [None]
  - HAEMATOCRIT DECREASED [None]
  - BLOOD BILIRUBIN INCREASED [None]
  - ALANINE AMINOTRANSFERASE INCREASED [None]
  - INGUINAL HERNIA [None]
  - HERNIA REPAIR [None]
  - PROTHROMBIN TIME PROLONGED [None]
  - BLOOD CREATININE DECREASED [None]
  - HEPATIC FUNCTION ABNORMAL [None]
  - ASPARTATE AMINOTRANSFERASE INCREASED [None]
  - BLOOD POTASSIUM DECREASED [None]
  - HAEMOGLOBIN DECREASED [None]
  - BLOOD LACTATE DEHYDROGENASE INCREASED [None]
  - RED BLOOD CELL COUNT DECREASED [None]
